FAERS Safety Report 4877273-4 (Version None)
Quarter: 2006Q1

REPORT INFORMATION
  Report Type: 
  Country: None (occurrence: None)
  Receive Date: 20060109
  Receipt Date: 20051228
  Transmission Date: 20060701
  Serious: No
  Sender: FDA-Public Use
  Company Number: 220713

PATIENT
  Age: 9 Year
  Sex: Male

DRUGS (2)
  1. NUTROPIN AQ [Suspect]
     Indication: CENTRAL NERVOUS SYSTEM NEOPLASM
     Dosage: 0.7 MG, 6/WEEK, SUBCUTANEOUS
     Route: 058
     Dates: start: 20040922, end: 20051101
  2. SYNTHROID [Concomitant]

REACTIONS (3)
  - MEDULLOBLASTOMA [None]
  - METASTASES TO SPINE [None]
  - NEOPLASM RECURRENCE [None]
